FAERS Safety Report 5073980-1 (Version None)
Quarter: 2006Q3

REPORT INFORMATION
  Report Type: 
  Country: None (occurrence: None)
  Receive Date: 20060808
  Receipt Date: 20060728
  Transmission Date: 20061208
  Serious: Yes (Other)
  Sender: FDA-Public Use
  Company Number: GR-ROCHE-457542

PATIENT
  Sex: Male
  Weight: 75 kg

DRUGS (1)
  1. ROACCUTAN [Suspect]
     Indication: DRUG USE FOR UNKNOWN INDICATION
     Route: 048

REACTIONS (1)
  - EOSINOPHILIA [None]
